FAERS Safety Report 19546552 (Version 2)
Quarter: 2021Q3

REPORT INFORMATION
  Report Type: Spontaneous
  Country: US (occurrence: US)
  Receive Date: 20210715
  Receipt Date: 20210803
  Transmission Date: 20211014
  Serious: Yes (Other)
  Sender: FDA-Public Use
  Company Number: US-DRREDDYS-SPO/USA/21/0137692

PATIENT
  Age: 31 Year
  Sex: Female

DRUGS (3)
  1. ZENATANE [Suspect]
     Active Substance: ISOTRETINOIN
     Dates: start: 20210501, end: 20210525
  2. ZENATANE [Suspect]
     Active Substance: ISOTRETINOIN
     Indication: PRODUCT USED FOR UNKNOWN INDICATION
     Dosage: RMA ISSUE DATE:14?OCTOBER?2020 4:31:18 PM,16?DECEMBER?2020 3:12:46 PM,13?JANUARY?2021 5:01:26 PM,24?
     Dates: start: 20201014, end: 20210430
  3. ZENATANE [Suspect]
     Active Substance: ISOTRETINOIN
     Dosage: RMA ISSUE DATE: 21?NOVEMBER?2020 10:20:46 AM

REACTIONS (2)
  - Exposure during pregnancy [Unknown]
  - Abortion [Recovered/Resolved]

NARRATIVE: CASE EVENT DATE: 20210713
